FAERS Safety Report 19615707 (Version 9)
Quarter: 2023Q4

REPORT INFORMATION
  Report Type: Spontaneous
  Country: JP (occurrence: JP)
  Receive Date: 20210727
  Receipt Date: 20231128
  Transmission Date: 20240109
  Serious: Yes (Hospitalization, Other)
  Sender: FDA-Public Use
  Company Number: JP-ONO-2021JP017192

PATIENT
  Age: 25 Year
  Sex: Female
  Weight: 51 kg

DRUGS (15)
  1. BRAFTOVI [Suspect]
     Active Substance: ENCORAFENIB
     Indication: Malignant melanoma
     Dosage: 450 MG, EVERYDAY
     Route: 048
     Dates: start: 20201202, end: 20201212
  2. BRAFTOVI [Suspect]
     Active Substance: ENCORAFENIB
     Dosage: 450 MG, EVERYDAY
     Route: 048
     Dates: start: 20201222, end: 20210330
  3. BRAFTOVI [Suspect]
     Active Substance: ENCORAFENIB
     Dosage: 450 MG, EVERYDAY
     Route: 048
     Dates: start: 20210624, end: 20210704
  4. BRAFTOVI [Suspect]
     Active Substance: ENCORAFENIB
     Dosage: 300 MG, EVERYDAY
     Route: 048
     Dates: start: 20210719, end: 20210727
  5. MEKTOVI [Suspect]
     Active Substance: BINIMETINIB
     Indication: Malignant melanoma
     Dosage: 45 MG, Q12H
     Route: 048
     Dates: start: 20201202, end: 20201212
  6. MEKTOVI [Suspect]
     Active Substance: BINIMETINIB
     Dosage: 45 MG, Q12H
     Route: 048
     Dates: start: 20201222, end: 20210330
  7. MEKTOVI [Suspect]
     Active Substance: BINIMETINIB
     Dosage: 45 MG, Q12H
     Route: 048
     Dates: start: 20210624, end: 20210704
  8. MEKTOVI [Suspect]
     Active Substance: BINIMETINIB
     Dosage: 30 MG, Q12H
     Route: 048
     Dates: start: 20210719, end: 20210727
  9. OPDIVO [Suspect]
     Active Substance: NIVOLUMAB
     Indication: Malignant melanoma
     Dosage: 80 MG, Q3W (EVERY 3 WEEKS)
     Route: 041
     Dates: start: 20221007, end: 20221028
  10. YERVOY [Suspect]
     Active Substance: IPILIMUMAB
     Indication: Malignant melanoma
     Dosage: 155 MG, Q3W (EVERY 3 WEEKS)
     Route: 041
     Dates: start: 20221007, end: 20221028
  11. TAFINLAR [Suspect]
     Active Substance: DABRAFENIB MESYLATE
     Indication: Malignant melanoma
     Dosage: UNK; (PHARMACEUTICAL FORM: ORAL DRUG UNSPECIFIED FORM)
     Route: 048
     Dates: start: 20210813
  12. TAFINLAR [Suspect]
     Active Substance: DABRAFENIB MESYLATE
     Dosage: UNK; (PHARMACEUTICAL FORM: ORAL DRUG UNSPECIFIED FORM)
     Route: 048
  13. MEKINIST [Suspect]
     Active Substance: TRAMETINIB DIMETHYL SULFOXIDE
     Indication: Malignant melanoma
     Dosage: UNK; (PHARMACEUTICAL FORM: ORAL DRUG UNSPECIFIED FORM)
     Route: 048
     Dates: start: 20210813
  14. MEKINIST [Suspect]
     Active Substance: TRAMETINIB DIMETHYL SULFOXIDE
     Dosage: UNK; (PHARMACEUTICAL FORM: ORAL DRUG UNSPECIFIED FORM)
     Route: 048
  15. KEYTRUDA [Concomitant]
     Active Substance: PEMBROLIZUMAB
     Dosage: 200.00 MG
     Route: 065
     Dates: start: 20210331, end: 20210602

REACTIONS (14)
  - Pyrexia [Recovering/Resolving]
  - Pyrexia [Recovering/Resolving]
  - Gallbladder enlargement [Recovered/Resolved]
  - Chorioretinitis [Recovered/Resolved]
  - Iridocyclitis [Recovering/Resolving]
  - Serous retinal detachment [Recovering/Resolving]
  - Immune-mediated hepatic disorder [Recovered/Resolved]
  - Alopecia [Recovering/Resolving]
  - Vision blurred [Recovered/Resolved]
  - Abdominal discomfort [Recovering/Resolving]
  - Malaise [Unknown]
  - Vomiting [Recovering/Resolving]
  - Diarrhoea [Unknown]
  - Pyrexia [Recovered/Resolved]

NARRATIVE: CASE EVENT DATE: 20201202
